FAERS Safety Report 20434700 (Version 1)
Quarter: 2022Q1

REPORT INFORMATION
  Report Type: Spontaneous
  Country: FR (occurrence: FR)
  Receive Date: 20220206
  Receipt Date: 20220206
  Transmission Date: 20220423
  Serious: Yes (Congenital Anomaly)
  Sender: FDA-Public Use
  Company Number: FR-NOVARTISPH-NVSC2022FR019110

PATIENT

DRUGS (3)
  1. EBASTINE [Suspect]
     Active Substance: EBASTINE
     Indication: Foetal exposure during pregnancy
     Dosage: MATERNAL DOSE: 2 DOSAGE FORM
     Route: 064
  2. ALBUTEROL [Suspect]
     Active Substance: ALBUTEROL
     Indication: Foetal exposure during pregnancy
     Dosage: MATERNAL DOSE: UNKNOWN
     Route: 064
  3. CETIRIZINE [Suspect]
     Active Substance: CETIRIZINE HYDROCHLORIDE
     Indication: Foetal exposure during pregnancy
     Dosage: MATERNAL DOSE: 1 DOSAGE FORM
     Route: 064

REACTIONS (4)
  - Holoprosencephaly [Not Recovered/Not Resolved]
  - Microphthalmos [Not Recovered/Not Resolved]
  - Ventricular hypoplasia [Not Recovered/Not Resolved]
  - Lymphoedema [Not Recovered/Not Resolved]
